FAERS Safety Report 20941439 (Version 1)
Quarter: 2022Q2

REPORT INFORMATION
  Report Type: Other
  Country: US (occurrence: None)
  Receive Date: 20220610
  Receipt Date: 20220610
  Transmission Date: 20220721
  Serious: Yes (Other)
  Sender: FDA-Public Use
  Company Number: US-ROCHE-3106626

PATIENT
  Sex: Female
  Weight: 71.67 kg

DRUGS (10)
  1. OCREVUS [Suspect]
     Active Substance: OCRELIZUMAB
     Indication: Multiple sclerosis
     Route: 042
  2. AZITHROMYCIN [Concomitant]
     Active Substance: AZITHROMYCIN
  3. BUPROPION HYDROCHLORIDE [Concomitant]
     Active Substance: BUPROPION HYDROCHLORIDE
  4. DEXTROAMPHETAMINE [Concomitant]
     Active Substance: DEXTROAMPHETAMINE
  5. FLUCONAZOLE [Concomitant]
     Active Substance: FLUCONAZOLE
  6. MEDROXYPROGESTERONE [Concomitant]
     Active Substance: MEDROXYPROGESTERONE
  7. METHYLPREDNISOLONE [Concomitant]
     Active Substance: METHYLPREDNISOLONE
  8. METRONIDAZOLE [Concomitant]
     Active Substance: METRONIDAZOLE
  9. RIZATRIPTAN [Concomitant]
     Active Substance: RIZATRIPTAN
  10. VALACYCLOVIR [Concomitant]
     Active Substance: VALACYCLOVIR HYDROCHLORIDE

REACTIONS (19)
  - Muscle twitching [Unknown]
  - Fatigue [Unknown]
  - Aphasia [Unknown]
  - Memory impairment [Unknown]
  - Peroneal nerve palsy [Unknown]
  - Muscle spasms [Unknown]
  - Gait disturbance [Unknown]
  - Abdominal pain lower [Unknown]
  - Vision blurred [Unknown]
  - Migraine [Unknown]
  - Facial pain [Unknown]
  - Syncope [Unknown]
  - Orthostatic hypotension [Unknown]
  - Pituitary tumour benign [Unknown]
  - Arthralgia [Unknown]
  - Mean cell haemoglobin concentration decreased [Unknown]
  - Mean cell haemoglobin concentration increased [Unknown]
  - Lymphocyte count decreased [Unknown]
  - CD8 lymphocytes decreased [Unknown]
